FAERS Safety Report 23430401 (Version 1)
Quarter: 2024Q1

REPORT INFORMATION
  Report Type: Spontaneous
  Country: US (occurrence: US)
  Receive Date: 20240123
  Receipt Date: 20240123
  Transmission Date: 20240410
  Serious: Yes (Life-Threatening, Other)
  Sender: FDA-Public Use
  Company Number: US-AstraZeneca-2024A009692

PATIENT
  Sex: Female

DRUGS (6)
  1. BUDESONIDE [Suspect]
     Active Substance: BUDESONIDE
     Dosage: RESPIRATORY INHALATION
     Route: 055
  2. BREZTRI [Suspect]
     Active Substance: BUDESONIDE\FORMOTEROL\GLYCOPYRROLATE
     Dosage: RESPIRATORY INHALATION
     Route: 055
  3. SYMBICORT [Suspect]
     Active Substance: BUDESONIDE\FORMOTEROL FUMARATE DIHYDRATE
     Dosage: RESPIRATORY INHALATION
     Route: 055
  4. METHIMAZOLE [Concomitant]
     Active Substance: METHIMAZOLE
  5. CLARITIN [Concomitant]
     Active Substance: LORATADINE
  6. NICOTINE [Concomitant]
     Active Substance: NICOTINE

REACTIONS (6)
  - Chronic respiratory failure [Unknown]
  - Pulmonary mass [Unknown]
  - Emphysema [Unknown]
  - Chronic obstructive pulmonary disease [Unknown]
  - Anxiety [Unknown]
  - COVID-19 [Unknown]
